FAERS Safety Report 9735894 (Version 2)
Quarter: 2013Q4

REPORT INFORMATION
  Report Type: Spontaneous
  Country: US (occurrence: US)
  Receive Date: 20131206
  Receipt Date: 20131206
  Transmission Date: 20140711
  Serious: No
  Sender: FDA-Public Use
  Company Number: US-GILEAD-2009-0023851

PATIENT
  Age: 30 Year
  Sex: Female
  Weight: 131.54 kg

DRUGS (9)
  1. LETAIRIS [Suspect]
     Indication: PULMONARY ARTERIAL HYPERTENSION
     Route: 048
     Dates: start: 20090818
  2. VERAPAMIL [Concomitant]
  3. SINGULAIR [Concomitant]
  4. ZYRTEC [Concomitant]
  5. LIPITOR [Concomitant]
  6. RISPERIDONE [Concomitant]
  7. PROAIR HFA [Concomitant]
  8. RANITIDINE [Concomitant]
  9. HYDROXYZINE [Concomitant]

REACTIONS (7)
  - Palpitations [Unknown]
  - Hypoaesthesia [Unknown]
  - Asthenia [Unknown]
  - Chest discomfort [Unknown]
  - Unevaluable event [Unknown]
  - Swelling [Unknown]
  - Dyspnoea [Unknown]
